FAERS Safety Report 6833680-1 (Version None)
Quarter: 2010Q3

REPORT INFORMATION
  Report Type: 
  Country: None (occurrence: None)
  Receive Date: 20100712
  Receipt Date: 20100706
  Transmission Date: 20110219
  Serious: Yes (Disabling, Other)
  Sender: FDA-Public Use
  Company Number: US-MERCK-1001USA01375

PATIENT
  Age: 54 Year
  Sex: Female
  Weight: 80 kg

DRUGS (7)
  1. FOSAMAX [Suspect]
     Indication: OSTEOPOROSIS
     Route: 048
     Dates: start: 19950101
  2. FOSAMAX [Suspect]
     Route: 048
     Dates: start: 20010501, end: 20080101
  3. FOSAMAX [Suspect]
     Route: 048
     Dates: start: 20010201, end: 20010501
  4. FOSAMAX PLUS D [Suspect]
     Indication: OSTEOPOROSIS
     Route: 048
     Dates: end: 20080101
  5. ESTRACE [Concomitant]
     Indication: MENOPAUSE
     Route: 065
     Dates: start: 19950101, end: 19981013
  6. ESTRACE [Concomitant]
     Route: 065
     Dates: start: 19981001, end: 20000223
  7. ESTRACE [Concomitant]
     Route: 048
     Dates: start: 20000703

REACTIONS (54)
  - ADVERSE EVENT [None]
  - AUTOIMMUNE HEPATITIS [None]
  - BILIARY CIRRHOSIS PRIMARY [None]
  - BILIARY TRACT DISORDER [None]
  - BONE DENSITY DECREASED [None]
  - BRUXISM [None]
  - CEREBROVASCULAR ACCIDENT [None]
  - CHOLELITHIASIS [None]
  - DEEP VEIN THROMBOSIS [None]
  - DENTAL CARIES [None]
  - DENTAL NECROSIS [None]
  - DIABETES MELLITUS [None]
  - DRUG HYPERSENSITIVITY [None]
  - DRUG INTERACTION [None]
  - DRY MOUTH [None]
  - FATIGUE [None]
  - GASTROOESOPHAGEAL REFLUX DISEASE [None]
  - GINGIVAL BLEEDING [None]
  - GINGIVITIS [None]
  - HEPATIC CYST [None]
  - HEPATIC ENZYME INCREASED [None]
  - HEPATIC NECROSIS [None]
  - HEPATIC STEATOSIS [None]
  - HYPERLIPIDAEMIA [None]
  - INGROWING NAIL [None]
  - MALAISE [None]
  - MIGRAINE WITH AURA [None]
  - MUSCLE TIGHTNESS [None]
  - NAUSEA [None]
  - OEDEMA MOUTH [None]
  - ONYCHOMYCOSIS [None]
  - ORAL PAIN [None]
  - OSTEONECROSIS [None]
  - OSTEOPENIA [None]
  - OSTEOPOROSIS [None]
  - PAIN IN JAW [None]
  - PERIODONTAL DISEASE [None]
  - PERIODONTITIS [None]
  - PULPITIS DENTAL [None]
  - REBOUND EFFECT [None]
  - RHINITIS ALLERGIC [None]
  - SCARLET FEVER [None]
  - SENSITIVITY OF TEETH [None]
  - SMOOTH MUSCLE ANTIBODY POSITIVE [None]
  - STOMATITIS [None]
  - TEMPOROMANDIBULAR JOINT SYNDROME [None]
  - TOOTH DEPOSIT [None]
  - TOOTH DISORDER [None]
  - TOOTHACHE [None]
  - TRAUMATIC OCCLUSION [None]
  - UPPER LIMB FRACTURE [None]
  - VIRAL UPPER RESPIRATORY TRACT INFECTION [None]
  - VOMITING [None]
  - WRIST FRACTURE [None]
